FAERS Safety Report 23535664 (Version 1)
Quarter: 2024Q1

REPORT INFORMATION
  Report Type: Spontaneous
  Country: US (occurrence: US)
  Receive Date: 20240218
  Receipt Date: 20240218
  Transmission Date: 20240409
  Serious: Yes (Hospitalization, Other)
  Sender: FDA-Public Use
  Company Number: US-BAXTER-2024BAX012857

PATIENT
  Age: 74 Year
  Sex: Male

DRUGS (7)
  1. CEFAZOLIN [Interacting]
     Active Substance: CEFAZOLIN
     Indication: Staphylococcal infection
     Dosage: 2 GRAMS, EVERY 12 HOURS, ANTIBIOTIC THERAPY, ON DAY 13
     Route: 042
  2. CEFAZOLIN [Interacting]
     Active Substance: CEFAZOLIN
     Indication: Osteomyelitis
     Dosage: DE-ESCALATED BACK TO CEFAZOLIN ON DAY 13, PLANNED TO COMPLETE 6 WEEKS OF CEFAZOLIN THERAPY AND THE P
     Route: 042
  3. CEFAZOLIN [Interacting]
     Active Substance: CEFAZOLIN
     Dosage: UPON DISCHARGE (DAY 23), THE PATIENT WAS CONTINUED ON CEFAZOLIN 2 GRAMS EVERY 12 HOURS
     Route: 042
  4. CEFAZOLIN [Interacting]
     Active Substance: CEFAZOLIN
     Dosage: INADVERTENT ADMINISTRATION OF DOUBLE THE PRESCRIBED DOSE OF CEFAZOLIN (4 GRAMS) FOR TWO DOSES
     Route: 042
  5. APIXABAN [Suspect]
     Active Substance: APIXABAN
     Indication: Anticoagulant therapy
     Dosage: 5 MG, BID
     Route: 048
  6. VANCOMYCIN [Concomitant]
     Active Substance: VANCOMYCIN
     Indication: Antibiotic therapy
     Dosage: ON DAY 5, BROADENED ANTIBIOTIC THERAPY
     Route: 042
  7. CEFEPIME [Concomitant]
     Active Substance: CEFEPIME HYDROCHLORIDE
     Indication: Antibiotic therapy
     Dosage: ON DAY 5, BROADENED ANTIBIOTIC THERAPY
     Route: 042

REACTIONS (8)
  - Coagulopathy [Recovering/Resolving]
  - International normalised ratio increased [Recovering/Resolving]
  - Prothrombin time prolonged [Unknown]
  - Activated partial thromboplastin time prolonged [Unknown]
  - Catheter site haemorrhage [Recovered/Resolved]
  - White blood cell count increased [Unknown]
  - Incorrect dose administered [Unknown]
  - Drug interaction [Unknown]
